FAERS Safety Report 4789054-0 (Version None)
Quarter: 2005Q4

REPORT INFORMATION
  Report Type: 
  Country: None (occurrence: None)
  Receive Date: 20051003
  Receipt Date: 20050801
  Transmission Date: 20060501
  Serious: No
  Sender: FDA-Public Use
  Company Number: SU-2005-003848

PATIENT
  Age: 49 Year
  Sex: Female
  Weight: 65.7716 kg

DRUGS (3)
  1. BENICAR HCT [Suspect]
     Indication: BLOOD PRESSURE
     Dosage: 20.125 MG QD PO
     Route: 048
     Dates: start: 20050719, end: 20050729
  2. SYNTHROID [Concomitant]
  3. MERIDIA [Concomitant]

REACTIONS (2)
  - DIZZINESS [None]
  - NAUSEA [None]
